FAERS Safety Report 9539734 (Version 1)
Quarter: 2013Q3

REPORT INFORMATION
  Report Type: Spontaneous
  Country: US (occurrence: US)
  Receive Date: 20130920
  Receipt Date: 20130920
  Transmission Date: 20140515
  Serious: No
  Sender: FDA-Public Use
  Company Number: US-PURDUE-USA-2013-0100895

PATIENT
  Age: 45 Year
  Sex: Female

DRUGS (3)
  1. INTERMEZZO [Suspect]
     Indication: PRODUCT USED FOR UNKNOWN INDICATION
     Dosage: 2.625 MG, UNK
     Route: 060
  2. INTERMEZZO [Suspect]
     Dosage: 1.75 MG, UNK
     Route: 060
  3. INTERMEZZO [Suspect]
     Dosage: 3.5 MG, UNK
     Route: 060

REACTIONS (4)
  - Wrong technique in drug usage process [Unknown]
  - Drug effect increased [Unknown]
  - Drug ineffective [Unknown]
  - Incorrect dose administered [Unknown]
